FAERS Safety Report 4608998-3 (Version None)
Quarter: 2005Q1

REPORT INFORMATION
  Report Type: 
  Country: None (occurrence: None)
  Receive Date: 20050311
  Receipt Date: 20050223
  Transmission Date: 20050727
  Serious: Yes (Death, Other)
  Sender: FDA-Public Use
  Company Number: 2005BI001750

PATIENT
  Age: 68 Year
  Sex: Female
  Weight: 56.6996 kg

DRUGS (15)
  1. AVONEX [Suspect]
     Indication: MULTIPLE SCLEROSIS
     Dosage: 30 UG; QW; IM
     Route: 030
  2. NATALIZUMAB [Suspect]
     Indication: MULTIPLE SCLEROSIS
     Dosage: 300 MG; QW; IV
     Route: 042
     Dates: start: 20041229
  3. NEURONTIN [Concomitant]
  4. DETROL [Concomitant]
  5. ZELNORM [Concomitant]
  6. PAXIL [Concomitant]
  7. TRIAMTERENE AND HYDROCHLOROTHIAZIDE [Concomitant]
  8. MULTI-VITAMIN [Concomitant]
  9. CALCIUM GLUCONATE [Concomitant]
  10. VITAMIN E [Concomitant]
  11. GLUCOSAMINE [Concomitant]
  12. VITAMIN C [Concomitant]
  13. COENZYME Q10 [Concomitant]
  14. B12 [Concomitant]
  15. FLONASE [Concomitant]

REACTIONS (2)
  - OVARIAN CANCER [None]
  - RENAL FAILURE [None]
